FAERS Safety Report 9723602 (Version 2)
Quarter: 2014Q3

REPORT INFORMATION
  Report Type: Spontaneous
  Country: MX (occurrence: MX)
  Receive Date: 20131202
  Receipt Date: 20140702
  Transmission Date: 20150326
  Serious: No
  Sender: FDA-Public Use
  Company Number: PHHY2013MX139678

PATIENT
  Age: 70 Year
  Sex: Female

DRUGS (3)
  1. VOLTAREN [Suspect]
     Active Substance: DICLOFENAC SODIUM
     Indication: HERNIA PAIN
     Dosage: 1 DF OR 2 DF, DAILY
     Route: 048
  2. VOLTAREN [Suspect]
     Active Substance: DICLOFENAC SODIUM
     Indication: OFF LABEL USE
  3. ARCOXIA [Concomitant]
     Active Substance: ETORICOXIB
     Indication: PAIN IN EXTREMITY
     Dosage: 1 DF, DAILY
     Dates: start: 2012

REACTIONS (1)
  - Pain [Unknown]
